FAERS Safety Report 9524884 (Version 1)
Quarter: 2013Q3

REPORT INFORMATION
  Report Type: Spontaneous
  Country: US (occurrence: None)
  Receive Date: 20130912
  Receipt Date: 20130912
  Transmission Date: 20140515
  Serious: Yes (Disabling)
  Sender: FDA-Public Use
  Company Number: None

PATIENT
  Age: 70 Year
  Sex: Male

DRUGS (10)
  1. TOPIRAMATE [Suspect]
     Indication: CONVULSION
  2. PRIMIDONE [Suspect]
     Indication: CONVULSION
     Dosage: 1 TAB
  3. LAMOTRIGINE [Suspect]
     Dosage: 1 TAB QAM AND 0.25 AT NOON
  4. ATENOLOL [Suspect]
     Dosage: 1 TAB
  5. TOPIRAMATE [Suspect]
     Dosage: 1 TAB
  6. B12 [Concomitant]
  7. MULTI-VITAMIN [Concomitant]
  8. VITAMIN E [Concomitant]
  9. VITAMIN D [Concomitant]
  10. ASPIRIN [Concomitant]

REACTIONS (4)
  - Liver injury [None]
  - Muscle disorder [None]
  - Gait disturbance [None]
  - Vision blurred [None]
